FAERS Safety Report 9447517 (Version 2)
Quarter: 2013Q3

REPORT INFORMATION
  Report Type: Spontaneous
  Country: US (occurrence: US)
  Receive Date: 20130808
  Receipt Date: 20130910
  Transmission Date: 20140515
  Serious: No
  Sender: FDA-Public Use
  Company Number: US-PFIZER INC-2013229272

PATIENT
  Age: 63 Year
  Sex: Female

DRUGS (22)
  1. XELJANZ [Suspect]
     Indication: RHEUMATOID ARTHRITIS
     Dosage: 5 MG, 2X/DAY
     Route: 048
     Dates: start: 20130711
  2. ADVAIR DISKUS [Concomitant]
     Dosage: FLUTICASONE PROPIONATE (250 MCG/ DOSE) SALMETEROL XINAFOATE (50 MCG/ DOSE), 2X/DAY (ONE PUFF BID)
     Route: 045
  3. AMOXICILLIN [Concomitant]
     Dosage: 500 MG, TAKE FOUR TABLETS PO X 1 30-60 MINUTES PRIOR TO DENTAL PROCEDURE 12
     Route: 048
  4. ASPIRIN [Concomitant]
     Dosage: 81 MG, 1X/DAY(ONE TABLET EVERY DAY)
     Route: 048
  5. CIMZIA [Concomitant]
     Dosage: 400 MG, MONTHLY (2X 200 MG, SUBCUTANEOUS INJECT 400 MG ONCE EVERY MONTH-ON HOLD FOR INFECTION 3)
     Route: 058
  6. DESYREL [Concomitant]
     Dosage: 100 MG, 1X/DAY (50 MG TWO TABLET EVERY DAY AT BEDTIME)
  7. FLECTOR [Concomitant]
     Dosage: 1.3 %, AS NEEDED (1.3% EVERY 12 HRS, OFF 12 HRS PRN 90)
  8. FOLIC ACID [Concomitant]
     Dosage: 1 MG, 1X/DAY (1 MG ORAL ONE TABLET EVERY DAY 90 DAYS 90)
     Route: 048
  9. KLOR-CON [Concomitant]
     Dosage: 10 MEQ, 3X/DAY (ONE TABLET THREE TIMES EVERY DAY 270)
     Route: 048
  10. KYTRIL [Concomitant]
     Dosage: 1 MG, AS NEEDED (ONE TABLET EVERY 12 HRS PRN 180)
     Route: 048
  11. LASIX [Concomitant]
     Dosage: 80 MG, 1X/DAY (TWO IN AM)
     Route: 048
  12. LIDOCAINE HYDROCHLORIDE [Concomitant]
     Dosage: UNK, AS NEEDED (3% EXTERNAL APPLY TO AFFECTED AREA BID PRN 3 TUBES)
  13. LIDODERM [Concomitant]
     Dosage: UNK, AS NEEDED (5% EXTERNAL 1-2 PATCH EVERY 12 HRS PRN)
  14. LOTRISONE [Concomitant]
     Dosage: UNK, AS NEEDED (1-0.05% EXTERNAL APPLY BID TO LEFT GROIN RASH PRN 60)
  15. NEURONTIN [Concomitant]
     Dosage: 600 MG, 3X/DAY (ONE PO TID 270)
     Route: 048
  16. NITROSTAT [Concomitant]
     Dosage: 0.4 MG, AS NEEDED
     Route: 060
  17. PROVENTIL INHALER [Concomitant]
     Dosage: UNK, AS NEEDED (90 MCG/ACT AS NEEDED)
     Route: 045
  18. PROVIGIL [Concomitant]
     Dosage: 200 MG, 1X/DAY (1 QD 90)
     Route: 048
  19. SYNTHROID [Concomitant]
     Dosage: 175 MCG ORAL 375 MCG PO QD
     Route: 048
  20. TOPROL XL [Concomitant]
     Dosage: 25 MG, 1X/DAY (ONE PO QD)
     Route: 048
  21. VALTREX [Concomitant]
     Dosage: 1000 MG, 1X/DAY (500 MG ORAL TWO TABLETS EVERY DAY PRN 90 DAYS 180)
     Route: 048
  22. WELCHOL [Concomitant]
     Dosage: 1875 MG, 2X/DAY (THREE TABS PO BID)
     Route: 048

REACTIONS (2)
  - Diarrhoea [Recovering/Resolving]
  - Abdominal pain [Recovering/Resolving]
